FAERS Safety Report 10261139 (Version 1)
Quarter: 2014Q2

REPORT INFORMATION
  Report Type: Spontaneous
  Country: US (occurrence: US)
  Receive Date: 20140626
  Receipt Date: 20140626
  Transmission Date: 20141212
  Serious: No
  Sender: FDA-Public Use
  Company Number: US-TEVA-450316USA

PATIENT
  Sex: Male

DRUGS (1)
  1. FINASTERIDE [Suspect]

REACTIONS (3)
  - Sleep disorder [Unknown]
  - Micturition urgency [Unknown]
  - Off label use [Unknown]
